FAERS Safety Report 16634886 (Version 1)
Quarter: 2019Q3

REPORT INFORMATION
  Report Type: Spontaneous
  Country: US (occurrence: US)
  Receive Date: 20190726
  Receipt Date: 20190726
  Transmission Date: 20191004
  Serious: Yes (Other)
  Sender: FDA-Public Use
  Company Number: US-APOTEX-2019AP019050

PATIENT
  Age: 19 Year
  Sex: Female

DRUGS (6)
  1. MYCOPHENOLATE [Suspect]
     Active Substance: MYCOPHENOLIC ACID
     Indication: AUTISM SPECTRUM DISORDER
  2. RITUXIMAB. [Concomitant]
     Active Substance: RITUXIMAB
     Indication: AUTISM SPECTRUM DISORDER
  3. RITUXIMAB. [Concomitant]
     Active Substance: RITUXIMAB
     Indication: TRISOMY 21
     Dosage: UNK
     Route: 065
  4. IMMUNOGLOBULIN                     /00025201/ [Concomitant]
     Active Substance: HUMAN IMMUNOGLOBULIN G
     Indication: AUTISM SPECTRUM DISORDER
     Dosage: 1000 MG/KG, Q.M.T.
     Route: 042
  5. MYCOPHENOLATE [Suspect]
     Active Substance: MYCOPHENOLIC ACID
     Indication: TRISOMY 21
     Dosage: 500 MG, BID
     Route: 065
  6. IMMUNOGLOBULIN                     /00025201/ [Concomitant]
     Active Substance: HUMAN IMMUNOGLOBULIN G
     Indication: TRISOMY 21
     Dosage: 2000 MG/KG, UNK
     Route: 042

REACTIONS (1)
  - Cytopenia [Unknown]
